FAERS Safety Report 15575109 (Version 1)
Quarter: 2018Q4

REPORT INFORMATION
  Report Type: Spontaneous
  Country: US (occurrence: US)
  Receive Date: 20181031
  Receipt Date: 20181031
  Transmission Date: 20190205
  Serious: Yes (Death)
  Sender: FDA-Public Use
  Company Number: None

PATIENT
  Age: 24 Year
  Sex: Female

DRUGS (3)
  1. MIFEPRISTONE [Suspect]
     Active Substance: MIFEPRISTONE
     Indication: ABORTION INDUCED
     Route: 048
     Dates: start: 20180817
  2. AZITHROMYCIN ANHYDROUS. [Concomitant]
     Active Substance: AZITHROMYCIN ANHYDROUS
  3. MISOPROSTOL. [Suspect]
     Active Substance: MISOPROSTOL
     Route: 002

REACTIONS (4)
  - Asphyxia [None]
  - Accident at home [None]
  - Maternal exposure before pregnancy [None]
  - Victim of homicide [None]

NARRATIVE: CASE EVENT DATE: 20180823
